FAERS Safety Report 21448424 (Version 1)
Quarter: 2022Q4

REPORT INFORMATION
  Report Type: Spontaneous
  Country: US (occurrence: US)
  Receive Date: 20221013
  Receipt Date: 20221013
  Transmission Date: 20230112
  Serious: Yes (Death, Other)
  Sender: FDA-Public Use
  Company Number: US-AUROBINDO-AUR-APL-2022-041808

PATIENT
  Sex: Female
  Weight: 104.3 kg

DRUGS (2)
  1. BELEODAQ [Suspect]
     Active Substance: BELINOSTAT
     Indication: Breast cancer metastatic
     Dosage: 600 MILLIGRAM/SQ. METER (DAYS 1-7)
     Route: 042
     Dates: start: 20220521, end: 20220521
  2. RIBOCICLIB [Suspect]
     Active Substance: RIBOCICLIB
     Indication: Breast cancer metastatic
     Dosage: 400 MILLIGRAM (DAYS 8-28)
     Route: 048
     Dates: start: 20220613, end: 20220613

REACTIONS (4)
  - Breast cancer metastatic [Fatal]
  - Disease progression [Fatal]
  - Pain [Not Recovered/Not Resolved]
  - Disorientation [Unknown]

NARRATIVE: CASE EVENT DATE: 20220830
